FAERS Safety Report 6384128-5 (Version None)
Quarter: 2009Q4

REPORT INFORMATION
  Report Type: 
  Country: None (occurrence: None)
  Receive Date: 20091001
  Receipt Date: 20090928
  Transmission Date: 20100525
  Serious: Yes (Hospitalization)
  Sender: FDA-Public Use
  Company Number: US-KINGPHARMUSA00001-K200901189

PATIENT
  Age: 65 Year
  Sex: Male

DRUGS (2)
  1. ALTACE [Suspect]
     Dosage: 5 MG, QD
     Route: 048
  2. STATIN [Concomitant]

REACTIONS (2)
  - JAUNDICE [None]
  - SPHINCTER OF ODDI DYSFUNCTION [None]
